FAERS Safety Report 10226713 (Version 3)
Quarter: 2014Q2

REPORT INFORMATION
  Report Type: Spontaneous
  Country: US (occurrence: US)
  Receive Date: 20140610
  Receipt Date: 20140616
  Transmission Date: 20141212
  Serious: Yes (Other)
  Sender: FDA-Public Use
  Company Number: US-DRREDDYS-USA/USA/14/0040957

PATIENT
  Age: 15 Year
  Sex: Male

DRUGS (6)
  1. ZENATANE [Suspect]
     Indication: ACNE
     Route: 048
     Dates: start: 20140312
  2. ZENATANE [Suspect]
     Route: 048
     Dates: start: 20140409
  3. ZENATANE [Suspect]
     Route: 048
  4. VYVANSE [Concomitant]
     Indication: PRODUCT USED FOR UNKNOWN INDICATION
     Route: 065
  5. FLONASE [Concomitant]
     Indication: PRODUCT USED FOR UNKNOWN INDICATION
     Route: 065
  6. HYDROCORTISONE [Concomitant]
     Indication: PRODUCT USED FOR UNKNOWN INDICATION
     Route: 061

REACTIONS (3)
  - Aggression [Recovering/Resolving]
  - Irritability [Recovering/Resolving]
  - Dry skin [Recovering/Resolving]
